FAERS Safety Report 21156518 (Version 1)
Quarter: 2022Q3

REPORT INFORMATION
  Report Type: Spontaneous
  Country: US (occurrence: None)
  Receive Date: 20220801
  Receipt Date: 20220801
  Transmission Date: 20221027
  Serious: Yes (Hospitalization)
  Sender: FDA-Public Use
  Company Number: None

PATIENT
  Age: 69 Year
  Sex: Male
  Weight: 111.58 kg

DRUGS (8)
  1. CAPECITABINE [Suspect]
     Active Substance: CAPECITABINE
     Indication: Colon cancer
     Dosage: OTHER FREQUENCY : 2W, 1W OFF;?
     Route: 048
  2. AMLODIPINE BESYLATE [Concomitant]
  3. ASPIRIN EC [Concomitant]
  4. CHLORTHALIDONE [Concomitant]
  5. LISINOPRIL [Concomitant]
     Active Substance: LISINOPRIL
  6. MULTIPLE VITAMIN [Concomitant]
  7. PROBIOTIC [Concomitant]
  8. ZYRTEC A [Concomitant]

REACTIONS (3)
  - Skin exfoliation [None]
  - Arthralgia [None]
  - Dehydration [None]
